FAERS Safety Report 18448718 (Version 1)
Quarter: 2020Q4

REPORT INFORMATION
  Report Type: Report from Study
  Country: GB (occurrence: GB)
  Receive Date: 20201030
  Receipt Date: 20201030
  Transmission Date: 20210114
  Serious: Yes (Disabling, Other)
  Sender: FDA-Public Use
  Company Number: GB-LARKEN LABORATORIES, INC.-2093455

PATIENT
  Age: 41 Year
  Sex: Male
  Weight: 79.55 kg

DRUGS (3)
  1. ACETAMINOPHEN-CAFFEINE-DIHYDROCODEINE TABLET [Suspect]
     Active Substance: ACETAMINOPHEN\CAFFEINE\DIHYDROCODEINE BITARTRATE
     Indication: OVERDOSE
  2. AMITRIPTYLINE HYDROCHLORIDE. [Suspect]
     Active Substance: AMITRIPTYLINE HYDROCHLORIDE
  3. DIAZEPAM. [Suspect]
     Active Substance: DIAZEPAM

REACTIONS (2)
  - Intensive care unit acquired weakness [Recovered/Resolved]
  - Coma [Recovered/Resolved]
